FAERS Safety Report 19681623 (Version 2)
Quarter: 2022Q4

REPORT INFORMATION
  Report Type: Spontaneous
  Country: DE (occurrence: DE)
  Receive Date: 20210810
  Receipt Date: 20221018
  Transmission Date: 20230113
  Serious: Yes (Hospitalization)
  Sender: FDA-Public Use
  Company Number: DE-ADRED-06958-01

PATIENT
  Age: 33 Year
  Sex: Male
  Weight: 75 kg

DRUGS (1)
  1. LIDOCAINE [Suspect]
     Active Substance: LIDOCAINE
     Indication: Product used for unknown indication
     Dosage: LOKALAN?STHESIE BEIM ZAHNARZT, FERTIGSPRITZEN
     Route: 065

REACTIONS (4)
  - Headache [Unknown]
  - Subdural haematoma [Unknown]
  - Hernia [Unknown]
  - Mass [Unknown]

NARRATIVE: CASE EVENT DATE: 20200928
